FAERS Safety Report 9740227 (Version 2)
Quarter: 2014Q1

REPORT INFORMATION
  Report Type: Spontaneous
  Country: US (occurrence: US)
  Receive Date: 20131209
  Receipt Date: 20140224
  Transmission Date: 20141002
  Serious: No
  Sender: FDA-Public Use
  Company Number: US-BIOGENIDEC-2013BI087928

PATIENT
  Age: 47 Year
  Sex: Female
  Weight: 104 kg

DRUGS (8)
  1. TECFIDERA [Suspect]
     Indication: PRODUCT USED FOR UNKNOWN INDICATION
     Route: 048
     Dates: start: 201308
  2. AMPYRA [Concomitant]
     Route: 048
  3. BENADRYL [Concomitant]
  4. CALCIUM PLUS D [Concomitant]
  5. OXYBUTYNIN ER [Concomitant]
  6. MODAFINIL [Concomitant]
  7. LEVORA-28 [Concomitant]
  8. PROVIGIL [Concomitant]

REACTIONS (7)
  - Overdose [Recovered/Resolved]
  - Gait disturbance [Unknown]
  - Abdominal discomfort [Unknown]
  - Diarrhoea [Unknown]
  - Flushing [Unknown]
  - Erythema [Recovered/Resolved]
  - Pruritus [Unknown]
